FAERS Safety Report 12237393 (Version 2)
Quarter: 2016Q2

REPORT INFORMATION
  Report Type: Spontaneous
  Country: BR (occurrence: BR)
  Receive Date: 20160405
  Receipt Date: 20160413
  Transmission Date: 20160815
  Serious: Yes (Hospitalization, Other)
  Sender: FDA-Public Use
  Company Number: BR-PFIZER INC-2015246546

PATIENT
  Age: 58 Year
  Sex: Male
  Weight: 76.5 kg

DRUGS (4)
  1. SUTENT [Suspect]
     Active Substance: SUNITINIB MALATE
     Indication: METASTATIC RENAL CELL CARCINOMA
     Dosage: 50 MG, CYCLIC 4X2
     Route: 048
     Dates: start: 201501
  2. SUTENT [Suspect]
     Active Substance: SUNITINIB MALATE
     Dosage: 50 MG, CYCLIC (14 DAYS OF USE AND 7 DAYS OF REST)
     Dates: start: 20160107, end: 201603
  3. AMLODIPINE/ATENOLOL [Concomitant]
     Dosage: UNSPECIFIED DOSE, 1X/DAY
  4. SUTENT [Suspect]
     Active Substance: SUNITINIB MALATE
     Dosage: 50 MG, CYCLIC (2 PER 1)
     Route: 048
     Dates: start: 20150107, end: 20160318

REACTIONS (52)
  - Metastatic renal cell carcinoma [Not Recovered/Not Resolved]
  - Dysgeusia [Unknown]
  - Blister [Unknown]
  - Eating disorder [Not Recovered/Not Resolved]
  - Nausea [Unknown]
  - Thyroid disorder [Unknown]
  - Blood triglycerides increased [Unknown]
  - Haemoglobin decreased [Unknown]
  - Limb injury [Unknown]
  - Yellow skin [Unknown]
  - Blood urea increased [Unknown]
  - Hypothyroidism [Recovered/Resolved]
  - Hypotension [Recovered/Resolved]
  - Blood creatinine abnormal [Recovered/Resolved]
  - Asthenia [Recovered/Resolved]
  - Anaemia [Unknown]
  - Blood creatine phosphokinase increased [Unknown]
  - Diarrhoea [Recovered/Resolved]
  - Dyspnoea [Recovered/Resolved]
  - Limb discomfort [Recovered/Resolved]
  - Cough [Unknown]
  - Weight decreased [Unknown]
  - Decreased appetite [Unknown]
  - Dehydration [Unknown]
  - Infection [Unknown]
  - Renal impairment [Recovered/Resolved]
  - Loss of consciousness [Unknown]
  - Disease progression [Not Recovered/Not Resolved]
  - Skin fissures [Unknown]
  - Erythema [Unknown]
  - Blood creatinine increased [Unknown]
  - C-reactive protein abnormal [Unknown]
  - Somnolence [Recovered/Resolved]
  - Pain in extremity [Recovered/Resolved]
  - Dizziness [Recovered/Resolved]
  - Gait disturbance [Recovered/Resolved]
  - Sleep disorder [Unknown]
  - Hyperkeratosis [Unknown]
  - Dry mouth [Unknown]
  - Pulmonary mass [Not Recovered/Not Resolved]
  - Inflammation [Not Recovered/Not Resolved]
  - Dry skin [Unknown]
  - Pain [Unknown]
  - Transaminases abnormal [Unknown]
  - Peripheral swelling [Unknown]
  - Blood glucose abnormal [Recovered/Resolved]
  - Chills [Recovered/Resolved]
  - Gait disturbance [Recovered/Resolved]
  - Pain in extremity [Recovered/Resolved]
  - Skin exfoliation [Not Recovered/Not Resolved]
  - Fatigue [Unknown]
  - Malaise [Unknown]

NARRATIVE: CASE EVENT DATE: 2015
